FAERS Safety Report 10176398 (Version 1)
Quarter: 2014Q2

REPORT INFORMATION
  Report Type: Spontaneous
  Country: FR (occurrence: FR)
  Receive Date: 20140516
  Receipt Date: 20140516
  Transmission Date: 20141212
  Serious: Yes (Hospitalization)
  Sender: FDA-Public Use
  Company Number: PHHY2014FR057648

PATIENT
  Age: 54 Year
  Sex: 0

DRUGS (2)
  1. PARACETAMOL [Suspect]
     Route: 048
  2. CEFACLOR [Suspect]

REACTIONS (2)
  - Anaphylactic shock [Unknown]
  - Anaphylactic reaction [Unknown]
